FAERS Safety Report 9263757 (Version 1)
Quarter: 2013Q2

REPORT INFORMATION
  Report Type: Spontaneous
  Country: US (occurrence: None)
  Receive Date: 20130429
  Receipt Date: 20130429
  Transmission Date: 20140414
  Serious: Yes (Hospitalization, Other)
  Sender: FDA-Public Use
  Company Number: None

PATIENT
  Age: 60 Year
  Sex: Female

DRUGS (1)
  1. KINERET [Suspect]
     Indication: RHEUMATOID ARTHRITIS
     Route: 058
     Dates: start: 20120511, end: 20130426

REACTIONS (5)
  - Gastrointestinal infection [None]
  - Diarrhoea [None]
  - Dehydration [None]
  - Electrolyte imbalance [None]
  - Myocardial infarction [None]
